FAERS Safety Report 5357625-9 (Version None)
Quarter: 2007Q2

REPORT INFORMATION
  Report Type: 
  Country: None (occurrence: None)
  Receive Date: 20070614
  Receipt Date: 20070608
  Transmission Date: 20071010
  Serious: Yes (Death, Life-Threatening)
  Sender: FDA-Public Use
  Company Number: FR-SHR-FR-2007-018872

PATIENT
  Age: 72 Year
  Sex: Male

DRUGS (1)
  1. MAGNEVIST [Suspect]
     Dosage: 15 ML, 1 DOSE
     Route: 042
     Dates: start: 20070512, end: 20070512

REACTIONS (5)
  - ACUTE PULMONARY OEDEMA [None]
  - BRONCHOSPASM [None]
  - CYANOSIS [None]
  - DIAPHRAGMATIC PARALYSIS [None]
  - TACHYCARDIA [None]
